FAERS Safety Report 7458678-4 (Version None)
Quarter: 2011Q2

REPORT INFORMATION
  Report Type: 
  Country: None (occurrence: None)
  Receive Date: 20110504
  Receipt Date: 20110426
  Transmission Date: 20111010
  Serious: Yes (Other)
  Sender: FDA-Public Use
  Company Number: CHPA2011US05918

PATIENT
  Age: 58 Year
  Sex: Female
  Weight: 72.562 kg

DRUGS (3)
  1. EXCEDRIN (MIGRAINE) [Suspect]
     Indication: PAIN
     Dosage: 1 DF, ONCE/SINGLE
     Route: 048
     Dates: start: 20110425, end: 20110425
  2. ALAVERT [Concomitant]
     Dosage: UNK, UNK
  3. SINGULAIR [Concomitant]
     Indication: ASTHMA
     Dosage: UNK, UNK

REACTIONS (2)
  - ANAPHYLACTIC SHOCK [None]
  - WRONG DRUG ADMINISTERED [None]
